FAERS Safety Report 20317924 (Version 1)
Quarter: 2022Q1

REPORT INFORMATION
  Report Type: Spontaneous
  Country: US (occurrence: None)
  Receive Date: 20220108
  Receipt Date: 20220108
  Transmission Date: 20220424
  Serious: Yes (Other)
  Sender: FDA-Public Use
  Company Number: None

PATIENT
  Age: 36 Year
  Sex: Male

DRUGS (1)
  1. FINASTERIDE [Suspect]
     Active Substance: FINASTERIDE
     Indication: Alopecia
     Dosage: OTHER QUANTITY : 1 TABLET(S);?
     Route: 048
     Dates: start: 20210812, end: 20210929

REACTIONS (5)
  - Product substitution issue [None]
  - Alopecia [None]
  - Alopecia [None]
  - Blood testosterone increased [None]
  - Libido disorder [None]

NARRATIVE: CASE EVENT DATE: 20210908
